FAERS Safety Report 4313202-X (Version None)
Quarter: 2004Q1

REPORT INFORMATION
  Report Type: 
  Country: None (occurrence: None)
  Receive Date: 20040308
  Receipt Date: 20040121
  Transmission Date: 20041129
  Serious: Yes (Other)
  Sender: FDA-Public Use
  Company Number: PHRM2004FR00634

PATIENT
  Age: 66 Year
  Sex: Male
  Weight: 72 kg

DRUGS (1)
  1. LAMISIL [Suspect]
     Indication: NAIL TINEA
     Dates: start: 20000412, end: 20000501

REACTIONS (2)
  - AGEUSIA [None]
  - PAROSMIA [None]
